FAERS Safety Report 20598836 (Version 2)
Quarter: 2023Q2

REPORT INFORMATION
  Report Type: Spontaneous
  Country: US (occurrence: US)
  Receive Date: 20220315
  Receipt Date: 20230616
  Transmission Date: 20230721
  Serious: Yes (Hospitalization, Other)
  Sender: FDA-Public Use
  Company Number: US-BRISTOL-MYERS SQUIBB COMPANY-BMS-2022-035950

PATIENT
  Age: 65 Year
  Sex: Male
  Weight: 91.63 kg

DRUGS (2)
  1. SPRYCEL [Suspect]
     Active Substance: DASATINIB
     Indication: Chronic myeloid leukaemia
     Dosage: UNK
     Dates: start: 202106
  2. SPRYCEL [Suspect]
     Active Substance: DASATINIB
     Dosage: UNK
     Dates: start: 202203

REACTIONS (5)
  - Intestinal perforation [Unknown]
  - Abscess [Unknown]
  - Obstruction [Unknown]
  - Polyp [Unknown]
  - Anaemia [Unknown]

NARRATIVE: CASE EVENT DATE: 20210801
